FAERS Safety Report 10035958 (Version 1)
Quarter: 2014Q1

REPORT INFORMATION
  Report Type: Spontaneous
  Country: IT (occurrence: IT)
  Receive Date: 20140325
  Receipt Date: 20140325
  Transmission Date: 20141002
  Serious: Yes (Other)
  Sender: FDA-Public Use
  Company Number: IT-WATSON-2014-05400

PATIENT
  Age: 77 Year
  Sex: Female
  Weight: 64 kg

DRUGS (2)
  1. CARBOPLATIN (UNKNOWN) [Suspect]
     Indication: BLADDER CANCER
     Dosage: 350 MG, CYCLICAL
     Route: 042
     Dates: start: 20130417, end: 20130926
  2. GEMCITABINE ACCORD [Suspect]
     Indication: BLADDER CANCER
     Dosage: 1680 MG, CYCLICAL
     Route: 042
     Dates: start: 20130417, end: 20130926

REACTIONS (1)
  - Thrombocytopenia [Recovering/Resolving]
